FAERS Safety Report 16211528 (Version 3)
Quarter: 2019Q2

REPORT INFORMATION
  Report Type: Report from Study
  Country: US (occurrence: US)
  Receive Date: 20190418
  Receipt Date: 20190621
  Transmission Date: 20190711
  Serious: Yes (Life-Threatening, Hospitalization)
  Sender: FDA-Public Use
  Company Number: US-ROCHE-2305100

PATIENT
  Age: 49 Year
  Sex: Female

DRUGS (28)
  1. ZYLOPRIM [Concomitant]
     Active Substance: ALLOPURINOL
  2. COLACE [Concomitant]
     Active Substance: DOCUSATE SODIUM
  3. PARACETAMOL [Concomitant]
     Active Substance: ACETAMINOPHEN
  4. PROCHLORPERAZINE. [Concomitant]
     Active Substance: PROCHLORPERAZINE
  5. MYCELEX TROCHE [Concomitant]
  6. ADMELOG [Concomitant]
     Active Substance: INSULIN LISPRO
  7. PRILOSEC [Concomitant]
     Active Substance: OMEPRAZOLE MAGNESIUM
  8. RITUXIMAB. [Suspect]
     Active Substance: RITUXIMAB
     Indication: RICHTER^S SYNDROME
     Dosage: ADJUSTED PER PROTOCOL
     Route: 042
  9. CYCLOPHOSPHAMIDE. [Suspect]
     Active Substance: CYCLOPHOSPHAMIDE
     Indication: RICHTER^S SYNDROME
     Route: 042
  10. POTASSIUM CHLORIDE. [Concomitant]
     Active Substance: POTASSIUM CHLORIDE
  11. ETOPOSIDE PHOSPHATE [Suspect]
     Active Substance: ETOPOSIDE PHOSPHATE
     Indication: RICHTER^S SYNDROME
     Route: 042
  12. VINCRISTINE SULFATE. [Suspect]
     Active Substance: VINCRISTINE SULFATE
     Indication: RICHTER^S SYNDROME
     Route: 042
  13. DOXORUBICIN HYDROCHLORIDE. [Suspect]
     Active Substance: DOXORUBICIN HYDROCHLORIDE
     Indication: RICHTER^S SYNDROME
     Route: 042
  14. PERIDEX [CHLORHEXIDINE GLUCONATE] [Concomitant]
  15. FERROUS SULFATE. [Concomitant]
     Active Substance: FERROUS SULFATE
  16. CLARITIN [Concomitant]
     Active Substance: LORATADINE
  17. DELTASONE [Concomitant]
     Active Substance: PREDNISONE
  18. BACTRIM [Concomitant]
     Active Substance: SULFAMETHOXAZOLE\TRIMETHOPRIM
     Route: 065
  19. SEPTRA [Concomitant]
     Active Substance: SULFAMETHOXAZOLE\TRIMETHOPRIM
  20. ZOVIRAX [Concomitant]
     Active Substance: ACYCLOVIR
  21. LEVAQUIN [Concomitant]
     Active Substance: LEVOFLOXACIN
  22. LEVEMIR [Concomitant]
     Active Substance: INSULIN DETEMIR
  23. MIRALAX [Concomitant]
     Active Substance: POLYETHYLENE GLYCOL 3350
  24. SENOKOT [Concomitant]
     Active Substance: SENNOSIDES
  25. FAMOTIDINE. [Concomitant]
     Active Substance: FAMOTIDINE
  26. PREDNISONE. [Suspect]
     Active Substance: PREDNISONE
     Indication: RICHTER^S SYNDROME
     Route: 042
  27. CALTRATE WITH VITAMIN D [Concomitant]
     Active Substance: CALCIUM CARBONATE\CHOLECALCIFEROL
  28. VENETOCLAX. [Suspect]
     Active Substance: VENETOCLAX
     Indication: RICHTER^S SYNDROME
     Route: 048

REACTIONS (18)
  - Oedema mucosal [Unknown]
  - Platelet count decreased [Unknown]
  - Fatigue [Unknown]
  - Dysphagia [Unknown]
  - Pyrexia [Unknown]
  - Duodenitis [Unknown]
  - Pancytopenia [Unknown]
  - Tenderness [Unknown]
  - Enteritis infectious [Unknown]
  - Febrile neutropenia [Unknown]
  - Hypokalaemia [Unknown]
  - Haemoglobin decreased [Unknown]
  - White blood cell count increased [Unknown]
  - Enteritis [Unknown]
  - Diarrhoea [Unknown]
  - Abdominal pain [Recovering/Resolving]
  - Mucosal inflammation [Unknown]
  - Pancytopenia [Unknown]

NARRATIVE: CASE EVENT DATE: 20190409
